FAERS Safety Report 20316819 (Version 5)
Quarter: 2022Q2

REPORT INFORMATION
  Report Type: Spontaneous
  Country: IT (occurrence: IT)
  Receive Date: 20220110
  Receipt Date: 20220518
  Transmission Date: 20220720
  Serious: Yes (Hospitalization, Other)
  Sender: FDA-Public Use
  Company Number: IT-AMGEN-ITASP2021200769

PATIENT
  Age: 9 Year
  Sex: Male

DRUGS (5)
  1. ADALIMUMAB [Suspect]
     Active Substance: ADALIMUMAB
     Indication: Crohn^s disease
     Dosage: 80 MILLIGRAM (SECOND INDUCTION DOSE)
     Route: 058
  2. ADALIMUMAB [Suspect]
     Active Substance: ADALIMUMAB
     Dosage: 40 MILLIGRAM, Q2W
     Route: 058
  3. ADALIMUMAB [Suspect]
     Active Substance: ADALIMUMAB
     Dosage: 120 MILLIGRAM (FIRST INDUCTION DOSE)
     Route: 058
  4. PREDNISONE [Concomitant]
     Active Substance: PREDNISONE
     Indication: Crohn^s disease
     Dosage: 0.5 MILLIGRAM/KILOGRAM, Q2D
     Route: 048
  5. PREDNISONE [Concomitant]
     Active Substance: PREDNISONE
     Dosage: UNK
     Route: 048

REACTIONS (3)
  - IgA nephropathy [Recovered/Resolved]
  - Acute kidney injury [Recovered/Resolved]
  - Off label use [Unknown]
